FAERS Safety Report 17232536 (Version 3)
Quarter: 2020Q1

REPORT INFORMATION
  Report Type: Report from Study
  Country: US (occurrence: US)
  Receive Date: 20200103
  Receipt Date: 20200225
  Transmission Date: 20200409
  Serious: Yes (Death, Hospitalization)
  Sender: FDA-Public Use
  Company Number: US-ACTELION-A-US2016-146909

PATIENT
  Age: 57 Year
  Sex: Female

DRUGS (15)
  1. ATORVASTATIN CALCIUM. [Concomitant]
     Active Substance: ATORVASTATIN CALCIUM
     Dosage: UNK
  2. VELETRI [Suspect]
     Active Substance: EPOPROSTENOL
     Dosage: 32 NG/KG, PER MIN
     Route: 042
  3. TUMS [Concomitant]
     Active Substance: CALCIUM CARBONATE
     Dosage: 1177 MG
     Dates: start: 20190530
  4. POTASSIUM CHLORIDE. [Concomitant]
     Active Substance: POTASSIUM CHLORIDE
     Dosage: 20 MEQ
     Dates: start: 20190404
  5. SLOW-MAG [Concomitant]
     Active Substance: MAGNESIUM CHLORIDE
     Dosage: 119 MG
     Dates: start: 20190530
  6. VELETRI [Suspect]
     Active Substance: EPOPROSTENOL
     Dosage: 33 NG/KG, PER MIN
     Route: 042
  7. SILDENAFIL CITRATE. [Concomitant]
     Active Substance: SILDENAFIL CITRATE
     Dosage: 20 MG
     Dates: start: 20180712
  8. TORSEMIDE. [Concomitant]
     Active Substance: TORSEMIDE
     Dosage: 20 MG
     Dates: start: 20190502
  9. OPSUMIT [Suspect]
     Active Substance: MACITENTAN
     Dosage: 10 MG, QD
     Route: 048
     Dates: start: 20160322
  10. VELETRI [Suspect]
     Active Substance: EPOPROSTENOL
     Indication: PULMONARY ARTERIAL HYPERTENSION
     Dosage: 47 NG/KG, PER MIN
     Route: 042
     Dates: start: 20161029
  11. VELETRI [Suspect]
     Active Substance: EPOPROSTENOL
     Dosage: 28 NG/KG, PER MIN
     Route: 042
  12. METOLAZONE. [Concomitant]
     Active Substance: METOLAZONE
     Dosage: 1.5 MG
     Dates: start: 20190502
  13. OPSUMIT [Suspect]
     Active Substance: MACITENTAN
     Indication: PULMONARY ARTERIAL HYPERTENSION
     Dosage: 10 MG, QD
     Route: 048
     Dates: start: 20150716, end: 20200205
  14. VELETRI [Suspect]
     Active Substance: EPOPROSTENOL
     Dosage: 10 NG/KG, PER MIN
     Route: 042
     Dates: start: 20161028
  15. UPTRAVI [Concomitant]
     Active Substance: SELEXIPAG
     Dosage: 1400 MCG
     Dates: start: 20180712

REACTIONS (40)
  - Dyspnoea [Fatal]
  - Dyspnoea exertional [Unknown]
  - Acute right ventricular failure [Fatal]
  - Respiratory distress [Fatal]
  - Pain in jaw [Not Recovered/Not Resolved]
  - Headache [Recovered/Resolved with Sequelae]
  - Ear pain [Recovered/Resolved]
  - Chest discomfort [Unknown]
  - Supraventricular tachycardia [Recovered/Resolved with Sequelae]
  - Myalgia [Not Recovered/Not Resolved]
  - Presyncope [Unknown]
  - Weight increased [Fatal]
  - Acute respiratory failure [Fatal]
  - Metapneumovirus infection [Unknown]
  - Fatigue [Unknown]
  - Chest pain [Recovered/Resolved]
  - Oedema [Unknown]
  - Walking distance test abnormal [Unknown]
  - Abdominal pain upper [Unknown]
  - Diarrhoea [Unknown]
  - Gastrointestinal disorder [Not Recovered/Not Resolved]
  - Peripheral swelling [Fatal]
  - Haemorrhage [Unknown]
  - Cardiac failure [Recovered/Resolved with Sequelae]
  - Abdominal discomfort [Unknown]
  - Cardiogenic shock [Fatal]
  - Palpitations [Fatal]
  - Syncope [Fatal]
  - Pulmonary arterial hypertension [Fatal]
  - Productive cough [Unknown]
  - Weight decreased [Not Recovered/Not Resolved]
  - Nausea [Unknown]
  - Dizziness [Unknown]
  - Constipation [Unknown]
  - Fluid overload [Fatal]
  - Orthopnoea [Fatal]
  - Hypotension [Recovered/Resolved with Sequelae]
  - Neck pain [Recovered/Resolved with Sequelae]
  - Decreased appetite [Not Recovered/Not Resolved]
  - Muscle spasms [Unknown]

NARRATIVE: CASE EVENT DATE: 20161006
